FAERS Safety Report 9876972 (Version 3)
Quarter: 2015Q3

REPORT INFORMATION
  Report Type: Report from Study
  Country: CA (occurrence: CA)
  Receive Date: 20140206
  Receipt Date: 20150724
  Transmission Date: 20151125
  Serious: Yes (Hospitalization, Other)
  Sender: FDA-Public Use
  Company Number: CA-ROCHE-1095102

PATIENT
  Age: 72 Year
  Sex: Female
  Weight: 81.72 kg

DRUGS (10)
  1. RITUXAN [Suspect]
     Active Substance: RITUXIMAB
     Indication: RHEUMATOID ARTHRITIS
     Dosage: LAST INFUSION ADMINISTERED ON 13/AUG/2012
     Route: 042
     Dates: start: 20100114
  2. BETOPTIC [Concomitant]
     Active Substance: BETAXOLOL HYDROCHLORIDE
  3. RAMIPRIL. [Concomitant]
     Active Substance: RAMIPRIL
     Indication: BLOOD PRESSURE MEASUREMENT
  4. TRIMIPRAMINE [Concomitant]
     Active Substance: TRIMIPRAMINE
  5. ACETAMINOPHEN. [Concomitant]
     Active Substance: ACETAMINOPHEN
     Indication: PREMEDICATION
     Route: 048
     Dates: start: 20120813
  6. HYDROCORTISONE SODIUM PHOSPHATE [Concomitant]
     Active Substance: HYDROCORTISONE SODIUM PHOSPHATE
     Indication: PREMEDICATION
     Route: 042
     Dates: start: 20120813
  7. FOLIC ACID. [Concomitant]
     Active Substance: FOLIC ACID
  8. DILAUDID [Suspect]
     Active Substance: HYDROMORPHONE HYDROCHLORIDE
     Indication: PRODUCT USED FOR UNKNOWN INDICATION
     Route: 065
  9. PLAQUENIL [Concomitant]
     Active Substance: HYDROXYCHLOROQUINE SULFATE
  10. METHOTREXATE [Concomitant]
     Active Substance: METHOTREXATE

REACTIONS (10)
  - Musculoskeletal stiffness [Unknown]
  - Fall [Unknown]
  - Hypothyroidism [Unknown]
  - Pneumonia [Recovered/Resolved]
  - Gastric disorder [Unknown]
  - Cystitis [Unknown]
  - Heart rate decreased [Unknown]
  - Pain [Unknown]
  - Weight decreased [Unknown]
  - Upper limb fracture [Unknown]

NARRATIVE: CASE EVENT DATE: 201004
